FAERS Safety Report 21423692 (Version 1)
Quarter: 2022Q4

REPORT INFORMATION
  Report Type: Spontaneous
  Country: US (occurrence: None)
  Receive Date: 20221007
  Receipt Date: 20221007
  Transmission Date: 20230113
  Serious: Yes (unspecified)
  Sender: FDA-Public Use
  Company Number: None

PATIENT
  Age: 62 Year
  Sex: Female
  Weight: 61.65 kg

DRUGS (14)
  1. TYRVAYA [Suspect]
     Active Substance: VARENICLINE TARTRATE
     Indication: Dry eye
     Dosage: OTHER QUANTITY : 1 SPRAY(S);?FREQUENCY : EVERY 12 HOURS;?OTHER ROUTE : INTO NOSE;?
     Route: 050
  2. BACLOFEN [Concomitant]
     Active Substance: BACLOFEN
  3. KLONOPIN [Concomitant]
     Active Substance: CLONAZEPAM
  4. xiidra eye drop [Concomitant]
  5. GABAPENTIN [Concomitant]
     Active Substance: GABAPENTIN
  6. Fentanyl Transdermal Patch [Concomitant]
  7. Vivell dot patch [Concomitant]
  8. COPAXONE [Concomitant]
     Active Substance: GLATIRAMER ACETATE
  9. TRAZODONE [Concomitant]
     Active Substance: TRAZODONE HYDROCHLORIDE
  10. VITAMINS [Concomitant]
     Active Substance: VITAMINS
  11. VITAMIN D [Concomitant]
     Active Substance: VITAMIN D NOS
  12. VITAMIN A [Concomitant]
     Active Substance: VITAMIN A
  13. calcium (Tums) [Concomitant]
  14. BIOTIN [Concomitant]
     Active Substance: BIOTIN

REACTIONS (12)
  - Chest pain [None]
  - Nasal congestion [None]
  - Paraesthesia [None]
  - Sensory loss [None]
  - Upper-airway cough syndrome [None]
  - Nasal discomfort [None]
  - X-ray abnormal [None]
  - Lung disorder [None]
  - Cough [None]
  - Oropharyngeal pain [None]
  - Multiple sclerosis relapse [None]
  - Eye irritation [None]

NARRATIVE: CASE EVENT DATE: 20220929
